FAERS Safety Report 14354105 (Version 1)
Quarter: 2018Q1

REPORT INFORMATION
  Report Type: Spontaneous
  Country: GB (occurrence: GB)
  Receive Date: 20180105
  Receipt Date: 20180105
  Transmission Date: 20180509
  Serious: Yes (Other)
  Sender: FDA-Public Use
  Company Number: GB-AXELLIA-001240

PATIENT
  Age: 76 Year
  Sex: Male

DRUGS (5)
  1. VANCOMYCIN [Suspect]
     Active Substance: VANCOMYCIN
     Indication: ENDOPHTHALMITIS
     Dosage: INTRAVITREAL - DRUG ADMINISTRATION
  2. PREDNISOLONE. [Concomitant]
     Active Substance: PREDNISOLONE
  3. CIPROFLOXACIN. [Concomitant]
     Active Substance: CIPROFLOXACIN
     Route: 061
  4. AMIKACIN [Suspect]
     Active Substance: AMIKACIN
     Indication: ENDOPHTHALMITIS
     Dosage: INTRAVITREAL - DRUG ADMINISTRATION
  5. GENTAMICIN. [Concomitant]
     Active Substance: GENTAMICIN
     Dosage: UNK
     Route: 061

REACTIONS (3)
  - Drug resistance [Unknown]
  - Product use issue [Unknown]
  - Pathogen resistance [Unknown]
